FAERS Safety Report 12488840 (Version 3)
Quarter: 2016Q4

REPORT INFORMATION
  Report Type: Spontaneous
  Country: US (occurrence: US)
  Receive Date: 20160622
  Receipt Date: 20161006
  Transmission Date: 20170207
  Serious: Yes (Hospitalization, Other)
  Sender: FDA-Public Use
  Company Number: US-PFIZER INC-2016300412

PATIENT
  Age: 58 Year
  Sex: Female

DRUGS (2)
  1. LETROZOLE. [Suspect]
     Active Substance: LETROZOLE
     Dosage: UNK
  2. IBRANCE [Suspect]
     Active Substance: PALBOCICLIB
     Dosage: 125 MG, UNK
     Dates: start: 201509

REACTIONS (9)
  - Pulmonary embolism [Unknown]
  - Nausea [Unknown]
  - Hypoaesthesia [Unknown]
  - Renal failure [Unknown]
  - Acne [Unknown]
  - Hot flush [Unknown]
  - Myocardial infarction [Unknown]
  - Pneumonia [Unknown]
  - Paraesthesia [Unknown]

NARRATIVE: CASE EVENT DATE: 201605
